FAERS Safety Report 10648617 (Version 1)
Quarter: 2014Q4

REPORT INFORMATION
  Report Type: Spontaneous
  Country: GB (occurrence: GB)
  Receive Date: 20141212
  Receipt Date: 20141212
  Transmission Date: 20150529
  Serious: Yes (Other)
  Sender: FDA-Public Use
  Company Number: GB-TEVA-527558ISR

PATIENT
  Age: 15 Year
  Sex: Male
  Weight: 48.8 kg

DRUGS (3)
  1. CITALOPRAM [Suspect]
     Active Substance: CITALOPRAM HYDROBROMIDE
     Indication: DEPRESSION
     Route: 048
     Dates: start: 20141119, end: 20141125
  2. CLARITHROMYCIN. [Concomitant]
     Active Substance: CLARITHROMYCIN
  3. CETIRIZINE [Concomitant]
     Active Substance: CETIRIZINE HYDROCHLORIDE

REACTIONS (6)
  - Hallucinations, mixed [Unknown]
  - Disturbance in attention [Unknown]
  - Depressed mood [Unknown]
  - Condition aggravated [Unknown]
  - Amnesia [Unknown]
  - Sleep terror [Unknown]

NARRATIVE: CASE EVENT DATE: 20141119
